FAERS Safety Report 9652473 (Version 1)
Quarter: 2013Q4

REPORT INFORMATION
  Report Type: Spontaneous
  Country: US (occurrence: None)
  Receive Date: 20131025
  Receipt Date: 20131025
  Transmission Date: 20140711
  Serious: Yes (Other)
  Sender: FDA-Public Use
  Company Number: IOPH20130001

PATIENT
  Sex: Female

DRUGS (1)
  1. IOPHEN-C NR [Suspect]
     Indication: INFLUENZA LIKE ILLNESS
     Route: 048
     Dates: start: 20130415, end: 20130415

REACTIONS (1)
  - Anaphylactic reaction [None]
